FAERS Safety Report 23693170 (Version 1)
Quarter: 2024Q2

REPORT INFORMATION
  Report Type: Report from Study
  Country: US (occurrence: None)
  Receive Date: 20240401
  Receipt Date: 20240401
  Transmission Date: 20240716
  Serious: Yes (Death)
  Sender: FDA-Public Use
  Company Number: 2024A074692

PATIENT
  Sex: Female

DRUGS (1)
  1. TRUQAP [Suspect]
     Active Substance: CAPIVASERTIB
     Dosage: 200MG TABLET -TAKE 2 TABLETS BY MOUTH TWICE DAILY FOR 4 CONSECUTIVE DAYS, FOLLOWED BY 3 DAYS OFF.
     Route: 048

REACTIONS (1)
  - Death [Fatal]
